FAERS Safety Report 6360936-1 (Version None)
Quarter: 2009Q3

REPORT INFORMATION
  Report Type: 
  Country: None (occurrence: None)
  Receive Date: 20090918
  Receipt Date: 20090910
  Transmission Date: 20100115
  Serious: Yes (Other)
  Sender: FDA-Public Use
  Company Number: PHHY2009CA38978

PATIENT
  Age: 55 Year
  Sex: Female

DRUGS (1)
  1. ESTRADERM [Suspect]
     Dosage: 50

REACTIONS (2)
  - DRUG INEFFECTIVE [None]
  - OSTEOPOROSIS [None]
